FAERS Safety Report 8210063-3 (Version None)
Quarter: 2012Q1

REPORT INFORMATION
  Report Type: 
  Country: None (occurrence: None)
  Receive Date: 20120314
  Receipt Date: 20110511
  Transmission Date: 20120608
  Serious: No
  Sender: FDA-Public Use
  Company Number: US-ASTRAZENECA-2011SE28098

PATIENT
  Age: 49 Year
  Sex: Female
  Weight: 68 kg

DRUGS (3)
  1. TOPROL-XL [Suspect]
     Indication: HYPERTENSION
     Route: 048
     Dates: start: 20110101
  2. TYLENOL [Concomitant]
     Dosage: PRN
  3. METOPROLOL SUCCINATE [Suspect]
     Indication: HYPERTENSION
     Route: 048
     Dates: start: 20100101, end: 20110101

REACTIONS (2)
  - MUSCLE TWITCHING [None]
  - PALPITATIONS [None]
